FAERS Safety Report 5307261-5 (Version None)
Quarter: 2007Q2

REPORT INFORMATION
  Report Type: 
  Country: None (occurrence: None)
  Receive Date: 20070425
  Receipt Date: 20070419
  Transmission Date: 20071010
  Serious: Yes (Disabling)
  Sender: FDA-Public Use
  Company Number: FR-GLAXOSMITHKLINE-B0466953A

PATIENT
  Age: 78 Year
  Sex: Female

DRUGS (6)
  1. DEROXAT [Suspect]
     Indication: DEPRESSION
     Route: 048
     Dates: end: 20060317
  2. PHENERGAN HCL [Suspect]
     Indication: DRUG USE FOR UNKNOWN INDICATION
     Route: 048
     Dates: end: 20050101
  3. TOPLEXIL [Suspect]
     Indication: DRUG USE FOR UNKNOWN INDICATION
     Route: 048
     Dates: end: 20050101
  4. LEXOMIL [Concomitant]
     Route: 048
  5. TAHOR [Concomitant]
     Route: 048
  6. REMINYL [Concomitant]
     Route: 065

REACTIONS (3)
  - COGNITIVE DISORDER [None]
  - MEMORY IMPAIRMENT [None]
  - NERVOUS SYSTEM DISORDER [None]
